FAERS Safety Report 6571485-X (Version None)
Quarter: 2010Q1

REPORT INFORMATION
  Report Type: 
  Country: None (occurrence: None)
  Receive Date: 20100205
  Receipt Date: 20100125
  Transmission Date: 20100710
  Serious: Yes (Other)
  Sender: FDA-Public Use
  Company Number: US-JNJFOC-20091104391

PATIENT
  Sex: Female
  Weight: 92.53 kg

DRUGS (14)
  1. REMICADE [Suspect]
     Indication: RHEUMATOID ARTHRITIS
     Route: 042
  2. REMICADE [Suspect]
     Route: 042
  3. NAPROSYN [Suspect]
     Indication: RHEUMATOID ARTHRITIS
  4. CALCIUM WITH VITAMIN D [Suspect]
     Indication: VITAMIN SUPPLEMENTATION
  5. ALEVE (CAPLET) [Concomitant]
     Indication: RHEUMATOID ARTHRITIS
  6. OMEPRAZOLE [Concomitant]
  7. METHOTREXATE [Concomitant]
     Indication: RHEUMATOID ARTHRITIS
  8. FOLIC ACID [Concomitant]
  9. BENICAR [Concomitant]
     Indication: HYPERTENSION
  10. LEVOTHYROXINE SODIUM [Concomitant]
     Indication: HYPOTHYROIDISM
  11. PREDNISONE [Concomitant]
  12. FUROSEMIDE [Concomitant]
  13. FLAX SEED OIL [Concomitant]
  14. FISH OIL [Concomitant]

REACTIONS (4)
  - ARTHROPATHY [None]
  - COUGH [None]
  - GASTRIC ULCER [None]
  - OESOPHAGEAL ULCER [None]
